FAERS Safety Report 9766993 (Version 1)
Quarter: 2013Q4

REPORT INFORMATION
  Report Type: Spontaneous
  Country: US (occurrence: US)
  Receive Date: 20131217
  Receipt Date: 20131217
  Transmission Date: 20140711
  Serious: No
  Sender: FDA-Public Use
  Company Number: US-GLAXOSMITHKLINE-A1036379A

PATIENT
  Age: 66 Year
  Sex: Male

DRUGS (7)
  1. VOTRIENT [Suspect]
     Indication: RENAL CANCER
     Dosage: 800MG PER DAY
     Route: 048
     Dates: start: 20130508
  2. AFINITOR [Concomitant]
  3. DIAZEPAM [Concomitant]
  4. METOPROLOL XL [Concomitant]
  5. MINOXIDIL [Concomitant]
  6. DIOVAN [Concomitant]
  7. RENVELA [Concomitant]

REACTIONS (3)
  - Eye swelling [Unknown]
  - Swelling face [Unknown]
  - Joint swelling [Unknown]
